FAERS Safety Report 7992844-4 (Version None)
Quarter: 2011Q4

REPORT INFORMATION
  Report Type: 
  Country: None (occurrence: None)
  Receive Date: 20111219
  Receipt Date: 20110202
  Transmission Date: 20120403
  Serious: No
  Sender: FDA-Public Use
  Company Number: US-ASTRAZENECA-2011SE05726

PATIENT
  Age: 63 Year
  Sex: Male
  Weight: 102.1 kg

DRUGS (3)
  1. ATENOLOL [Concomitant]
  2. LIPITOR [Concomitant]
     Indication: HYPERCHOLESTEROLAEMIA
  3. CRESTOR [Suspect]
     Indication: HYPERCHOLESTEROLAEMIA
     Route: 048
     Dates: start: 20100601, end: 20110131

REACTIONS (3)
  - DIABETES MELLITUS [None]
  - GLYCOSYLATED HAEMOGLOBIN DECREASED [None]
  - WEIGHT DECREASED [None]
